FAERS Safety Report 17806533 (Version 2)
Quarter: 2020Q3

REPORT INFORMATION
  Report Type: Spontaneous
  Country: US (occurrence: US)
  Receive Date: 20200520
  Receipt Date: 20200922
  Transmission Date: 20201102
  Serious: No
  Sender: FDA-Public Use
  Company Number: US-BAUSCH-BL-2020-013250

PATIENT
  Age: 91 Year
  Sex: Female
  Weight: 55.84 kg

DRUGS (1)
  1. DILTIAZEM HYDROCHLORIDE EXTENDED?RELEASE CAPSULES, USP [Suspect]
     Active Substance: DILTIAZEM HYDROCHLORIDE
     Indication: BLOOD PRESSURE ABNORMAL
     Dosage: HAS BEEN TAKING FOR 70 DAYS FROM THE REPORTING DATE
     Route: 048
     Dates: start: 202002

REACTIONS (3)
  - Constipation [Recovered/Resolved]
  - Peripheral swelling [Recovered/Resolved]
  - Dry eye [Recovered/Resolved]

NARRATIVE: CASE EVENT DATE: 2020
